FAERS Safety Report 6205839-8 (Version None)
Quarter: 2009Q2

REPORT INFORMATION
  Report Type: 
  Country: None (occurrence: None)
  Receive Date: 20090527
  Receipt Date: 20090511
  Transmission Date: 20091009
  Serious: No
  Sender: FDA-Public Use
  Company Number: US-ABBOTT-09P-163-0571278-00

PATIENT
  Sex: Male
  Weight: 81.72 kg

DRUGS (5)
  1. SIMCOR [Suspect]
     Indication: HIGH DENSITY LIPOPROTEIN DECREASED
     Dosage: 500/20MG DAILY AT NIGHT
     Dates: start: 20090301, end: 20090501
  2. ATENOLOL [Concomitant]
     Indication: HYPERTENSION
  3. ASPIRIN [Concomitant]
     Indication: CARDIAC DISORDER
  4. PRILOSEC [Concomitant]
     Indication: DYSPEPSIA
  5. ACCUPRIL [Concomitant]
     Indication: HYPERTENSION

REACTIONS (2)
  - BACK PAIN [None]
  - INSOMNIA [None]
